FAERS Safety Report 5950906-7 (Version None)
Quarter: 2008Q4

REPORT INFORMATION
  Report Type: 
  Country: None (occurrence: None)
  Receive Date: 20081112
  Receipt Date: 20081103
  Transmission Date: 20090506
  Serious: Yes (Hospitalization)
  Sender: FDA-Public Use
  Company Number: US-PFIZER INC-2008048800

PATIENT
  Sex: Male
  Weight: 86.2 kg

DRUGS (7)
  1. SOLU-MEDROL [Suspect]
     Indication: MULTIPLE SCLEROSIS
     Dosage: FREQ:FREQUENCY: 1 IN 3 MONTHS
     Dates: start: 20080101
  2. REBIF [Suspect]
     Indication: MULTIPLE SCLEROSIS
     Dosage: DAILY DOSE:44MCG-FREQ:FREQUENCY:3 IN 1 WEEKS
     Route: 058
     Dates: start: 20080102
  3. IMMUNE GLOBULIN NOS [Suspect]
     Indication: MULTIPLE SCLEROSIS
     Dosage: DAILY DOSE:3-FREQ:FREQUENCY: 1 IN 3 MONTHS
     Route: 042
     Dates: start: 20080101
  4. PROZAC [Concomitant]
     Indication: DEPRESSION
     Route: 048
     Dates: start: 20070122
  5. MACRODANTIN [Concomitant]
     Indication: URINARY TRACT INFECTION
     Dates: start: 20070801
  6. OXYBUTYNIN [Concomitant]
     Indication: BLADDER DISORDER
     Dosage: DAILY DOSE:3.9MG
     Dates: start: 20070523
  7. PROVIGIL [Concomitant]
     Dates: start: 20070227

REACTIONS (2)
  - ATRIAL FIBRILLATION [None]
  - HEADACHE [None]
